FAERS Safety Report 7764191-7 (Version None)
Quarter: 2011Q3

REPORT INFORMATION
  Report Type: 
  Country: None (occurrence: None)
  Receive Date: 20110921
  Receipt Date: 20110915
  Transmission Date: 20111222
  Serious: Yes (Other)
  Sender: FDA-Public Use
  Company Number: GR-ROXANE LABORATORIES, INC.-2011-RO-01285RO

PATIENT
  Age: 76 Year
  Sex: Female

DRUGS (5)
  1. CALCIUM CARBONATE [Suspect]
     Dosage: 500 MG
     Dates: start: 20010101
  2. METHOTREXATE [Suspect]
     Indication: SJOGREN'S SYNDROME
     Route: 048
     Dates: start: 19920101
  3. ZOLENDRONIC ACID [Suspect]
     Dosage: 5 MG
     Route: 042
     Dates: start: 20090601
  4. TERIPARATIDE [Suspect]
     Indication: OSTEOPOROSIS
     Dosage: 20 MG
     Route: 058
     Dates: start: 20070101, end: 20090601
  5. ZOLENDRONIC ACID [Suspect]
     Indication: OSTEOPOROSIS
     Route: 042
     Dates: end: 20060101

REACTIONS (6)
  - VITAMIN D DEFICIENCY [None]
  - MULTIPLE FRACTURES [None]
  - HYPERPARATHYROIDISM SECONDARY [None]
  - PSEUDARTHROSIS [None]
  - FRACTURE DELAYED UNION [None]
  - OSTEOPOROSIS [None]
